FAERS Safety Report 8740280 (Version 2)
Quarter: 2013Q4

REPORT INFORMATION
  Report Type: Spontaneous
  Country: US (occurrence: US)
  Receive Date: 20120823
  Receipt Date: 20131101
  Transmission Date: 20140711
  Serious: No
  Sender: FDA-Public Use
  Company Number: US-009507513-1208USA003189

PATIENT
  Age: 57 Year
  Sex: Female

DRUGS (6)
  1. SAPHRIS [Suspect]
     Indication: BIPOLAR DISORDER
     Dosage: 5 MG, QD
     Route: 060
     Dates: start: 20120731, end: 20120804
  2. CELEXA [Concomitant]
  3. XANAX [Concomitant]
  4. SYNTHROID [Concomitant]
  5. FIORINAL (ACETAMINOPHEN (+) ASPIRIN (+) CAFFEINE) [Concomitant]
  6. FLEXERIL [Concomitant]

REACTIONS (4)
  - Nightmare [Not Recovered/Not Resolved]
  - Agitation [Not Recovered/Not Resolved]
  - Insomnia [Not Recovered/Not Resolved]
  - Medication error [Unknown]
